FAERS Safety Report 6292278-7 (Version None)
Quarter: 2009Q3

REPORT INFORMATION
  Report Type: 
  Country: None (occurrence: None)
  Receive Date: 20090731
  Receipt Date: 20070709
  Transmission Date: 20100115
  Serious: Yes (Hospitalization)
  Sender: FDA-Public Use
  Company Number: US-ASTRAZENECA-2006UW12166

PATIENT
  Age: 21627 Day
  Sex: Male
  Weight: 158 kg

DRUGS (25)
  1. SEROQUEL [Suspect]
     Indication: ANXIETY
     Dosage: 25 MG - 800 MG
     Route: 048
     Dates: start: 19960101, end: 20060211
  2. SEROQUEL [Suspect]
     Indication: SCHIZOPHRENIA
     Dosage: 25 MG - 800 MG
     Route: 048
     Dates: start: 19960101, end: 20060211
  3. SEROQUEL [Suspect]
     Route: 048
     Dates: start: 20030101
  4. SEROQUEL [Suspect]
     Route: 048
     Dates: start: 20030101
  5. ABILIFY [Concomitant]
     Dates: start: 20060206
  6. HALDOL [Concomitant]
     Dates: start: 19940101
  7. STELAZINE [Concomitant]
     Dates: start: 19690101, end: 19700101
  8. THORAZINE [Concomitant]
     Dates: start: 19690101, end: 19700101
  9. BUSPAR [Concomitant]
     Dates: start: 19950101
  10. ASPIRIN [Concomitant]
     Dosage: STRENGTH - 81 MG DAILY
     Route: 048
  11. BUSPIRONE HCL [Concomitant]
     Route: 048
  12. LEXAPRO [Concomitant]
     Dosage: STRENGTH - 10 MG DAILY
     Route: 048
  13. PREVACID [Concomitant]
     Route: 048
  14. METOPROLOL TARTRATE [Concomitant]
     Dosage: STRENGTH - 50 MG, 125 MG, 100 MG, 200 MG.  DOSE - 250 MG - 400 MG DAILY
     Route: 048
  15. ZYPREXA [Concomitant]
     Route: 048
  16. CLONIDINE [Concomitant]
     Dosage: STRENGTH - 0.2 MG DAILY
  17. FUROSEMIDE [Concomitant]
     Dosage: STRENGTH - 40 MG DAILY.
     Route: 048
  18. OMEPRAZOLE [Concomitant]
     Route: 048
  19. AMLODIPINE [Concomitant]
     Dosage: STRENGTH - 5 MG DAILY.
     Route: 048
  20. BENAZEPRIL HYDROCHLORIDE [Concomitant]
     Dosage: STRENGTH - 10 MG, 40 MG. DOSE - 20 MG - 40 MG DAILY
     Route: 048
  21. ENALAPRIL MALEATE [Concomitant]
  22. CLOZAPINE [Concomitant]
  23. NIFEDIPINE [Concomitant]
     Route: 048
  24. CEPHALEXIN [Concomitant]
     Route: 048
  25. METHYLDOPA [Concomitant]
     Route: 048

REACTIONS (3)
  - DIABETES MELLITUS [None]
  - HYPERGLYCAEMIC HYPEROSMOLAR NONKETOTIC SYNDROME [None]
  - TYPE 2 DIABETES MELLITUS [None]
